FAERS Safety Report 9746266 (Version 2)
Quarter: 2014Q1

REPORT INFORMATION
  Report Type: Report from Study
  Country: GB (occurrence: GB)
  Receive Date: 20131211
  Receipt Date: 20140314
  Transmission Date: 20141002
  Serious: Yes (Other)
  Sender: FDA-Public Use
  Company Number: GB-CELGENEUS-167-21880-13115746

PATIENT
  Age: 74 Year
  Sex: Male

DRUGS (7)
  1. REVLIMID [Suspect]
     Indication: PLASMA CELL MYELOMA
     Route: 048
     Dates: start: 201201
  2. REVLIMID [Suspect]
     Route: 048
     Dates: start: 20110218, end: 20110728
  3. REVLIMID [Suspect]
     Route: 048
     Dates: start: 20110902, end: 20120112
  4. DEXAMETHASONE [Suspect]
     Indication: PLASMA CELL MYELOMA
     Route: 048
     Dates: start: 201201
  5. DEXAMETHASONE [Suspect]
     Route: 048
     Dates: start: 20110218, end: 20110725
  6. DEXAMETHASONE [Suspect]
     Route: 048
     Dates: start: 20110902, end: 20111014
  7. CYCLOPHOSPHAMIDE [Suspect]
     Indication: PLASMA CELL MYELOMA
     Route: 048
     Dates: start: 20110218, end: 20110715

REACTIONS (1)
  - Colon cancer [Not Recovered/Not Resolved]
